FAERS Safety Report 7634128-X (Version None)
Quarter: 2011Q3

REPORT INFORMATION
  Report Type: 
  Country: None (occurrence: None)
  Receive Date: 20110725
  Receipt Date: 20110721
  Transmission Date: 20111222
  Serious: No
  Sender: FDA-Public Use
  Company Number: US-PFIZER INC-2011166979

PATIENT
  Sex: Female
  Weight: 89.342 kg

DRUGS (6)
  1. GEODON [Suspect]
     Indication: ANXIETY
  2. NEURONTIN [Concomitant]
     Indication: PAIN
  3. GEODON [Suspect]
     Indication: BIPOLAR I DISORDER
     Dosage: 40 MG IN THE MORNING AND 80 MG IN THE EVENING
     Dates: start: 20110716
  4. NEURONTIN [Concomitant]
     Indication: HEADACHE
     Dosage: 600 MG, 2X/DAY
  5. CYMBALTA [Concomitant]
     Indication: BIPOLAR I DISORDER
     Dosage: 60 MG, 2X/DAY
  6. CYMBALTA [Concomitant]
     Indication: PAIN

REACTIONS (3)
  - DIZZINESS [None]
  - HYPOAESTHESIA [None]
  - SOMNOLENCE [None]
